FAERS Safety Report 10511639 (Version 1)
Quarter: 2014Q4

REPORT INFORMATION
  Report Type: Report from Study
  Country: AT (occurrence: AT)
  Receive Date: 20141010
  Receipt Date: 20141010
  Transmission Date: 20150528
  Serious: Yes (Hospitalization)
  Sender: FDA-Public Use
  Company Number: AT-BRISTOL-MYERS SQUIBB COMPANY-21481171

PATIENT
  Age: 23 Year
  Sex: Male
  Weight: 56 kg

DRUGS (5)
  1. ABILIFY [Suspect]
     Active Substance: ARIPIPRAZOLE
     Dosage: DOSE REDUCED 10MG/DAY FRM 18JUN14-19JUN14, 5MG/D 20JUN14-22JUN14
     Route: 048
     Dates: start: 20140531, end: 20140622
  2. RISPERIDONE. [Concomitant]
     Active Substance: RISPERIDONE
  3. XANOR [Concomitant]
     Active Substance: ALPRAZOLAM
  4. ZYPREXA [Concomitant]
     Active Substance: OLANZAPINE
  5. ASPIRIN. [Concomitant]
     Active Substance: ASPIRIN

REACTIONS (4)
  - Akathisia [Recovered/Resolved]
  - Sleep disorder [Recovered/Resolved]
  - Restlessness [Recovered/Resolved]
  - Psychotic disorder [Recovered/Resolved]

NARRATIVE: CASE EVENT DATE: 20140610
